FAERS Safety Report 9491039 (Version 1)
Quarter: 2013Q3

REPORT INFORMATION
  Report Type: Spontaneous
  Country: US (occurrence: US)
  Receive Date: 20130830
  Receipt Date: 20130830
  Transmission Date: 20140515
  Serious: Yes (Hospitalization)
  Sender: FDA-Public Use
  Company Number: US-MYLANLABS-2013S1018925

PATIENT
  Sex: Male

DRUGS (4)
  1. VINCRISTINE [Suspect]
     Indication: ALVEOLAR RHABDOMYOSARCOMA
     Dosage: 1.5 MG/M2 ON DAYS 1 AND 8 EVERY 21 DAYS
     Route: 042
  2. IRINOTECAN [Suspect]
     Indication: ALVEOLAR RHABDOMYOSARCOMA
     Dosage: 30 MG/M2 ON DAYS 1 TO 5 EVERY 21 DAYS
     Route: 042
  3. TEMOZOLOMIDE [Suspect]
     Indication: ALVEOLAR RHABDOMYOSARCOMA
     Dosage: 100 MG/M2 ON DAYS 1 TO 5 EVERY 21 DAYS
     Route: 048
  4. PEGFILGRASTIM [Concomitant]
     Dosage: ON DAY 10
     Route: 058

REACTIONS (2)
  - Neuropathy peripheral [Unknown]
  - Pyrexia [Unknown]
